FAERS Safety Report 6023514-X (Version None)
Quarter: 2008Q4

REPORT INFORMATION
  Report Type: 
  Country: None (occurrence: None)
  Receive Date: 20081230
  Receipt Date: 20081222
  Transmission Date: 20090506
  Serious: Yes (Hospitalization, Disabling)
  Sender: FDA-Public Use
  Company Number: PHHY2008JP25793

PATIENT
  Sex: Female
  Weight: 56 kg

DRUGS (4)
  1. AREDIA [Suspect]
     Indication: METASTASES TO BONE
     Dosage: 30 MG DAILY
     Route: 042
     Dates: start: 20050530, end: 20060626
  2. ZOMETA [Suspect]
     Indication: METASTASES TO BONE
     Dosage: 4 MG, QMO
     Route: 042
     Dates: start: 20060724, end: 20070709
  3. ANESTHETICS, LOCAL [Concomitant]
  4. ANESTHETICS, GENERAL [Concomitant]

REACTIONS (12)
  - C-REACTIVE PROTEIN INCREASED [None]
  - DEBRIDEMENT [None]
  - DYSARTHRIA [None]
  - INCISIONAL DRAINAGE [None]
  - INFECTION [None]
  - JAW OPERATION [None]
  - OSTEOMYELITIS [None]
  - OSTEONECROSIS [None]
  - PAIN IN JAW [None]
  - SWELLING [None]
  - TOOTH EXTRACTION [None]
  - WHITE BLOOD CELL COUNT INCREASED [None]
